FAERS Safety Report 14884294 (Version 3)
Quarter: 2020Q1

REPORT INFORMATION
  Report Type: Report from Study
  Country: IN (occurrence: IN)
  Receive Date: 20180511
  Receipt Date: 20200305
  Transmission Date: 20200409
  Serious: Yes (Other)
  Sender: FDA-Public Use
  Company Number: PHHY2018IN006847

PATIENT
  Age: 71 Year
  Sex: Male

DRUGS (3)
  1. TASIGNA [Suspect]
     Active Substance: NILOTINIB
     Indication: CHRONIC MYELOID LEUKAEMIA
     Dosage: 300 MG, BID
     Route: 048
     Dates: start: 20180312, end: 20180320
  2. TASIGNA [Suspect]
     Active Substance: NILOTINIB
     Dosage: 150 MG, BID
     Route: 048
     Dates: start: 20190323, end: 20200203
  3. TASIGNA [Suspect]
     Active Substance: NILOTINIB
     Dosage: 300 MG (300 MG MORNING-150 MG EVENING)
     Route: 065
     Dates: start: 20200204

REACTIONS (4)
  - Dysentery [Unknown]
  - Chronic myeloid leukaemia [Unknown]
  - Product use issue [Unknown]
  - Malignant neoplasm progression [Unknown]

NARRATIVE: CASE EVENT DATE: 20180318
